FAERS Safety Report 9416248 (Version 1)
Quarter: 2013Q3

REPORT INFORMATION
  Report Type: Spontaneous
  Country: GR (occurrence: None)
  Receive Date: 20130717
  Receipt Date: 20130717
  Transmission Date: 20140515
  Serious: Yes (Other)
  Sender: FDA-Public Use
  Company Number: ENTC2013-0254

PATIENT
  Age: 58 Year
  Sex: Female

DRUGS (2)
  1. STALEVO (LEVODOPA, CARBIDOPA, ENTACAPONE) [Suspect]
     Indication: PARKINSON^S DISEASE
     Dosage: FROM LSAT 5 TO 6 YEARS
  2. MADOPAR [Concomitant]

REACTIONS (6)
  - Headache [None]
  - Blood pressure abnormal [None]
  - Dyspnoea [None]
  - Hyperhidrosis [None]
  - Peripheral vascular disorder [None]
  - Vasodilatation [None]
